FAERS Safety Report 16073806 (Version 1)
Quarter: 2019Q1

REPORT INFORMATION
  Report Type: Spontaneous
  Country: US (occurrence: US)
  Receive Date: 20190314
  Receipt Date: 20190314
  Transmission Date: 20190418
  Serious: No
  Sender: FDA-Public Use
  Company Number: US-BAYER-2019-051651

PATIENT
  Age: 75 Year
  Sex: Female
  Weight: 86 kg

DRUGS (6)
  1. PHILLIPS^ COLON HEALTH [Suspect]
     Active Substance: PROBIOTICS NOS
     Indication: ABDOMINAL DISTENSION
  2. PHILLIPS^ COLON HEALTH [Suspect]
     Active Substance: PROBIOTICS NOS
     Indication: DIARRHOEA
  3. MIRALAX [Suspect]
     Active Substance: POLYETHYLENE GLYCOL 3350
     Indication: COLONOSCOPY
     Dosage: UNK
     Route: 048
  4. PHILLIPS^ COLON HEALTH [Suspect]
     Active Substance: PROBIOTICS NOS
     Indication: CONSTIPATION PROPHYLAXIS
     Dosage: 1 DF, QD
     Route: 048
     Dates: start: 20190309
  5. PHILLIPS^ COLON HEALTH [Suspect]
     Active Substance: PROBIOTICS NOS
     Indication: FLATULENCE
  6. MIRALAX [Suspect]
     Active Substance: POLYETHYLENE GLYCOL 3350
     Indication: COLONOSCOPY
     Dosage: UNK
     Route: 048
     Dates: start: 201902

REACTIONS (4)
  - Product use in unapproved indication [Unknown]
  - Product use in unapproved indication [None]
  - Product use in unapproved indication [Unknown]
  - Abdominal discomfort [Not Recovered/Not Resolved]

NARRATIVE: CASE EVENT DATE: 2018
